FAERS Safety Report 7715994-6 (Version None)
Quarter: 2011Q3

REPORT INFORMATION
  Report Type: 
  Country: None (occurrence: None)
  Receive Date: 20110829
  Receipt Date: 20110819
  Transmission Date: 20111222
  Serious: Yes (Death)
  Sender: FDA-Public Use
  Company Number: US-ABBOTT-11P-163-0848069-02

PATIENT
  Sex: Female

DRUGS (5)
  1. HUMIRA [Concomitant]
     Indication: CROHN'S DISEASE
     Route: 058
     Dates: start: 20090713
  2. HUMIRA [Suspect]
     Route: 058
     Dates: end: 20110716
  3. HUMIRA [Suspect]
     Route: 058
  4. HUMIRA [Suspect]
     Indication: CROHN'S DISEASE
     Route: 058
     Dates: start: 20090730, end: 20090730
  5. MERCAPTOPURINE [Concomitant]
     Indication: CROHN'S DISEASE
     Dates: start: 20040101

REACTIONS (1)
  - DEATH [None]
